FAERS Safety Report 11029660 (Version 1)
Quarter: 2015Q2

REPORT INFORMATION
  Report Type: Spontaneous
  Country: US (occurrence: None)
  Receive Date: 20150413
  Receipt Date: 20150413
  Transmission Date: 20150821
  Serious: Yes (Other)
  Sender: FDA-Public Use
  Company Number: None

PATIENT
  Age: 29 Year
  Sex: Female
  Weight: 56.7 kg

DRUGS (3)
  1. OCELLA [Concomitant]
     Active Substance: DROSPIRENONE\ETHINYL ESTRADIOL
  2. ADDERALL [Concomitant]
     Active Substance: AMPHETAMINE ASPARTATE\AMPHETAMINE SULFATE\DEXTROAMPHETAMINE SACCHARATE\DEXTROAMPHETAMINE SULFATE
  3. CHANTIX [Suspect]
     Active Substance: VARENICLINE TARTRATE
     Indication: SMOKING CESSATION THERAPY
     Route: 048
     Dates: start: 20150310, end: 20150410

REACTIONS (11)
  - Verbal abuse [None]
  - Drug interaction [None]
  - Mental disorder [None]
  - Loss of consciousness [None]
  - Nightmare [None]
  - Aggression [None]
  - Feeling drunk [None]
  - Anger [None]
  - Unevaluable event [None]
  - Psychotic disorder [None]
  - Inappropriate affect [None]

NARRATIVE: CASE EVENT DATE: 20150410
